FAERS Safety Report 5091015-1 (Version None)
Quarter: 2006Q3

REPORT INFORMATION
  Report Type: 
  Country: None (occurrence: None)
  Receive Date: 20060829
  Receipt Date: 20050719
  Transmission Date: 20061208
  Serious: No
  Sender: FDA-Public Use
  Company Number: S2005US08836

PATIENT
  Sex: Female

DRUGS (1)
  1. ACYCLOVIR [Suspect]

REACTIONS (1)
  - VAGINAL DISCHARGE [None]
